FAERS Safety Report 6045247-6 (Version None)
Quarter: 2009Q1

REPORT INFORMATION
  Report Type: 
  Country: None (occurrence: None)
  Receive Date: 20090121
  Receipt Date: 20090108
  Transmission Date: 20090719
  Serious: Yes (Other)
  Sender: FDA-Public Use
  Company Number: PHHY2009CL01020

PATIENT
  Sex: Male

DRUGS (1)
  1. LEPONEX [Suspect]
     Indication: SCHIZOPHRENIA
     Dosage: 175 MG/DAY
     Dates: start: 20080901

REACTIONS (2)
  - EOSINOPHILIA [None]
  - MICROCYTOSIS [None]
